FAERS Safety Report 21552795 (Version 1)
Quarter: 2022Q4

REPORT INFORMATION
  Report Type: Spontaneous
  Country: US (occurrence: US)
  Receive Date: 20221104
  Receipt Date: 20221104
  Transmission Date: 20230113
  Serious: Yes (Death, Other)
  Sender: FDA-Public Use
  Company Number: US-ALKEM LABORATORIES LIMITED-US-ALKEM-2022-11844

PATIENT
  Age: 29 Year
  Sex: Male

DRUGS (6)
  1. OXYCODONE HYDROCHLORIDE [Suspect]
     Active Substance: OXYCODONE HYDROCHLORIDE
     Indication: Product used for unknown indication
     Dosage: UNK, 680 NANOGRAM PER MILLLIITER IN BLOOD
     Route: 065
  2. BENZOYLECGONINE [Suspect]
     Active Substance: BENZOYLECGONINE
     Indication: Product used for unknown indication
     Dosage: UNK,1300 NANOGRAM PER MILLILITER IN BLOOD
     Route: 065
  3. DELTA(9)-TETRAHYDROCANNABINOLIC ACID [Suspect]
     Active Substance: DELTA(9)-TETRAHYDROCANNABINOLIC ACID
     Indication: Product used for unknown indication
     Dosage: UNK, 7.1 NANOGRAM PER MILLILITER IN BLOOD
     Route: 065
  4. DIAZEPAM [Suspect]
     Active Substance: DIAZEPAM
     Indication: Product used for unknown indication
     Dosage: UNK, 260 NANOGRAM PER MILLILITER IN BLOOD
     Route: 065
  5. NORDAZEPAM [Suspect]
     Active Substance: NORDAZEPAM
     Indication: Product used for unknown indication
     Dosage: UNK, 59 NANOGRAM PER MILLILITER IN BLOOD
     Route: 065
  6. OXYMORPHONE [Suspect]
     Active Substance: OXYMORPHONE
     Indication: Product used for unknown indication
     Dosage: UNK, 2.1 NANOGRAM PER MILLILITER IN BLOOD
     Route: 065

REACTIONS (10)
  - Toxicity to various agents [Fatal]
  - Loss of consciousness [Unknown]
  - Miosis [Unknown]
  - Dysarthria [Unknown]
  - Gait disturbance [Unknown]
  - Balance disorder [Unknown]
  - Confusional state [Unknown]
  - Somnolence [Unknown]
  - Heart rate increased [Unknown]
  - Blood pressure increased [Unknown]
